FAERS Safety Report 20172014 (Version 2)
Quarter: 2021Q4

REPORT INFORMATION
  Report Type: Report from Study
  Country: US (occurrence: US)
  Receive Date: 20211210
  Receipt Date: 20211230
  Transmission Date: 20220303
  Serious: No
  Sender: FDA-Public Use
  Company Number: US-NOVARTISTESTPH-NVSC2021US283117

PATIENT
  Age: 44 Year
  Sex: Female

DRUGS (2)
  1. GILENYA [Suspect]
     Active Substance: FINGOLIMOD HYDROCHLORIDE
     Indication: Multiple sclerosis
     Dosage: 0.5 MG
     Route: 048
     Dates: start: 20211208
  2. GILENYA [Suspect]
     Active Substance: FINGOLIMOD HYDROCHLORIDE
     Dosage: 0.5 MG, QD
     Route: 048

REACTIONS (9)
  - Muscular weakness [Unknown]
  - Musculoskeletal stiffness [Unknown]
  - Rash macular [Unknown]
  - Tremor [Unknown]
  - Visual impairment [Unknown]
  - Limb discomfort [Unknown]
  - Nausea [Unknown]
  - Asthenia [Unknown]
  - Oral herpes [Unknown]

NARRATIVE: CASE EVENT DATE: 20211208
